FAERS Safety Report 8121730-4 (Version None)
Quarter: 2012Q1

REPORT INFORMATION
  Report Type: 
  Country: None (occurrence: None)
  Receive Date: 20120207
  Receipt Date: 20120207
  Transmission Date: 20120608
  Serious: Yes (Life-Threatening, Hospitalization, Other)
  Sender: FDA-Public Use
  Company Number: None

PATIENT
  Sex: Female
  Weight: 108.8633 kg

DRUGS (1)
  1. IMITREX [Suspect]
     Indication: MIGRAINE
     Dosage: ONE DOSE SUBCU
     Route: 058
     Dates: start: 20120121

REACTIONS (10)
  - CHEST PAIN [None]
  - CHEST DISCOMFORT [None]
  - THROAT TIGHTNESS [None]
  - DYSPNOEA [None]
  - OROPHARYNGEAL PAIN [None]
  - VISUAL IMPAIRMENT [None]
  - NONSPECIFIC REACTION [None]
  - PALPITATIONS [None]
  - EYE PRURITUS [None]
  - SENSATION OF HEAVINESS [None]
